FAERS Safety Report 5352279-X (Version None)
Quarter: 2007Q2

REPORT INFORMATION
  Report Type: 
  Country: None (occurrence: None)
  Receive Date: 20070611
  Receipt Date: 20070605
  Transmission Date: 20071010
  Serious: Yes (Death, Hospitalization, Other)
  Sender: FDA-Public Use
  Company Number: US-AVENTIS-200618201GDDC

PATIENT
  Age: 75 Year
  Sex: Male
  Weight: 61.1 kg

DRUGS (14)
  1. DOCETAXEL [Suspect]
     Indication: PROSTATE CANCER
     Route: 042
     Dates: start: 20050401, end: 20050401
  2. VELCADE [Suspect]
     Indication: PROSTATE CANCER
     Route: 042
     Dates: start: 20050401, end: 20050401
  3. LANOXIN [Concomitant]
     Indication: ATRIAL FIBRILLATION
     Dosage: DOSE: 0.25 MG ON TUESDAY, THURSDAY, SATURDAY AND SUNDAY
     Dates: start: 19980101
  4. LANOXIN [Concomitant]
     Dosage: DOSE: 0.125 MG ON MONDAY, WEDNESDAY AND FRIDAY
     Dates: start: 19980101
  5. FLOMAX [Concomitant]
     Dates: start: 19980301
  6. ASPIRIN [Concomitant]
     Dates: start: 19980101
  7. PROTONIX [Concomitant]
  8. LORTAB [Concomitant]
     Indication: PAIN
     Dates: start: 20041101
  9. MEGACE [Concomitant]
     Route: 048
     Dates: start: 20041201
  10. MS CONTIN [Concomitant]
     Indication: PAIN
  11. SENOKOT [Concomitant]
     Indication: CONSTIPATION
     Dosage: DOSE: UNK
     Dates: start: 20041201
  12. AMBIEN [Concomitant]
     Dates: start: 20050201
  13. PROZAC [Concomitant]
     Indication: DEPRESSION
     Route: 048
     Dates: start: 20050330
  14. LASIX [Concomitant]
     Dates: start: 20050201

REACTIONS (10)
  - CONDITION AGGRAVATED [None]
  - DEHYDRATION [None]
  - DIARRHOEA [None]
  - FATIGUE [None]
  - HYPOCALCAEMIA [None]
  - HYPOKALAEMIA [None]
  - HYPONATRAEMIA [None]
  - NAUSEA [None]
  - PROSTATE CANCER [None]
  - VOMITING [None]
